FAERS Safety Report 17485275 (Version 1)
Quarter: 2020Q1

REPORT INFORMATION
  Report Type: Report from Study
  Country: US (occurrence: US)
  Receive Date: 20200302
  Receipt Date: 20200302
  Transmission Date: 20200409
  Serious: Yes (Hospitalization)
  Sender: FDA-Public Use
  Company Number: US-ACTELION-A-US2019-191277

PATIENT
  Age: 43 Year
  Sex: Female
  Weight: 63.49 kg

DRUGS (1)
  1. UPTRAVI [Suspect]
     Active Substance: SELEXIPAG
     Indication: PULMONARY ARTERIAL HYPERTENSION
     Dosage: 200 MCG, BID
     Route: 048
     Dates: start: 201905

REACTIONS (5)
  - Pneumonia [Unknown]
  - Influenza [Unknown]
  - Nausea [Unknown]
  - Wrong technique in product usage process [Unknown]
  - Migraine [Unknown]

NARRATIVE: CASE EVENT DATE: 201905
